FAERS Safety Report 10481836 (Version 4)
Quarter: 2014Q4

REPORT INFORMATION
  Report Type: Spontaneous
  Country: GB (occurrence: GB)
  Receive Date: 20140929
  Receipt Date: 20141110
  Transmission Date: 20150528
  Serious: Yes (Other)
  Sender: FDA-Public Use
  Company Number: PHFR2014GB005384

PATIENT
  Age: 75 Year
  Sex: Female

DRUGS (3)
  1. TRILEPTAL [Suspect]
     Active Substance: OXCARBAZEPINE
     Dosage: 525 MG DAILY (225 MG IN MORNING AND 300 IN NIGHT)
     Route: 048
  2. TRILEPTAL [Suspect]
     Active Substance: OXCARBAZEPINE
     Indication: EPILEPSY
     Dosage: 555 DAILY (225 MG IN MORNING AND 330 IN NIGHT)
     Route: 048
  3. OXCARBAZEPINE. [Suspect]
     Active Substance: OXCARBAZEPINE
     Indication: EPILEPSY
     Route: 065

REACTIONS (7)
  - Hallucination [Recovered/Resolved]
  - Feeling abnormal [Unknown]
  - Rash pruritic [Unknown]
  - Depressed mood [Unknown]
  - Drug hypersensitivity [Unknown]
  - Seizure [Unknown]
  - Nightmare [Recovered/Resolved]

NARRATIVE: CASE EVENT DATE: 201407
